FAERS Safety Report 16140055 (Version 1)
Quarter: 2019Q2

REPORT INFORMATION
  Report Type: Spontaneous
  Country: US (occurrence: US)
  Receive Date: 20190401
  Receipt Date: 20190401
  Transmission Date: 20190711
  Serious: No
  Sender: FDA-Public Use
  Company Number: US-TEVA-2019-US-1024158

PATIENT
  Sex: Female

DRUGS (1)
  1. LETROZOLE. [Suspect]
     Active Substance: LETROZOLE
     Route: 065

REACTIONS (5)
  - Rash pruritic [Unknown]
  - Pain in extremity [Recovering/Resolving]
  - Rash [Unknown]
  - Musculoskeletal stiffness [Recovering/Resolving]
  - Somnolence [Recovering/Resolving]
